FAERS Safety Report 4960030-8 (Version None)
Quarter: 2006Q1

REPORT INFORMATION
  Report Type: 
  Country: None (occurrence: None)
  Receive Date: 20060331
  Receipt Date: 20051109
  Transmission Date: 20060701
  Serious: Yes (Hospitalization)
  Sender: FDA-Public Use
  Company Number: US-MERCK-0511USA01666

PATIENT
  Age: 61 Year
  Sex: Female
  Weight: 115 kg

DRUGS (2)
  1. VIOXX [Suspect]
     Indication: ARTHRITIS
     Route: 048
     Dates: start: 20010222, end: 20021130
  2. TYLENOL (CAPLET) [Concomitant]
     Route: 065

REACTIONS (5)
  - CHEST DISCOMFORT [None]
  - CORONARY ARTERY DISEASE [None]
  - DYSPNOEA [None]
  - HEADACHE [None]
  - MYOCARDIAL INFARCTION [None]
